FAERS Safety Report 4774028-6 (Version None)
Quarter: 2005Q3

REPORT INFORMATION
  Report Type: 
  Country: None (occurrence: None)
  Receive Date: 20050919
  Receipt Date: 20050913
  Transmission Date: 20060218
  Serious: Yes (Other)
  Sender: FDA-Public Use
  Company Number: GBWYE949502SEP05

PATIENT
  Age: 38 Year
  Sex: Female

DRUGS (9)
  1. RAPAMUNE [Suspect]
     Indication: TRANSPLANT
     Dosage: 4 MG DAILY  ORAL  : 2 MG 1X PER 1 DAY
     Route: 048
     Dates: start: 20050820, end: 20050101
  2. RAPAMUNE [Suspect]
     Indication: TRANSPLANT
     Dosage: 4 MG DAILY  ORAL  : 2 MG 1X PER 1 DAY
     Route: 048
     Dates: start: 20050101
  3. MYCOPHENOLATE MOFETIL [Concomitant]
  4. TACROLIMUS [Concomitant]
  5. CAMPATH [Concomitant]
  6. SEPTRA [Concomitant]
  7. NIFEDIPINE [Concomitant]
  8. SIMVASTATIN [Concomitant]
  9. DOXAZOSIN [Concomitant]

REACTIONS (2)
  - COUGH [None]
  - DYSPNOEA [None]
